FAERS Safety Report 16570236 (Version 3)
Quarter: 2019Q3

REPORT INFORMATION
  Report Type: Spontaneous
  Country: US (occurrence: US)
  Receive Date: 20190715
  Receipt Date: 20190827
  Transmission Date: 20191004
  Serious: No
  Sender: FDA-Public Use
  Company Number: US-BAYER-2019-132315

PATIENT
  Age: 47 Year
  Sex: Female
  Weight: 108 kg

DRUGS (2)
  1. MIRENA [Suspect]
     Active Substance: LEVONORGESTREL
     Indication: CONTRACEPTION
  2. MIRENA [Suspect]
     Active Substance: LEVONORGESTREL
     Indication: CONTRACEPTION
     Dosage: 20 MCG/24HR, CONT
     Route: 015
     Dates: start: 2012, end: 20190712

REACTIONS (3)
  - Device use issue [Recovered/Resolved]
  - Presyncope [None]
  - Procedural pain [None]

NARRATIVE: CASE EVENT DATE: 2012
